FAERS Safety Report 4711177-2 (Version None)
Quarter: 2005Q3

REPORT INFORMATION
  Report Type: 
  Country: None (occurrence: None)
  Receive Date: 20050708
  Receipt Date: 20050630
  Transmission Date: 20060218
  Serious: Yes (Hospitalization)
  Sender: FDA-Public Use
  Company Number: 2005-04-0698

PATIENT
  Age: 31 Year
  Sex: Female
  Weight: 46 kg

DRUGS (17)
  1. PEG-INTERFERON (PEGINTERFERON ALFA-2B) INJECTABLE POWDER [Suspect]
     Indication: HEPATITIS C
     Dosage: 80-60 MCG QW SUBCUTANEOU
     Route: 058
     Dates: start: 20050225, end: 20050428
  2. PEG-INTRON [Suspect]
     Indication: HEPATITIS C
     Dosage: 80 MCG QW SUBCUTANEOUS
     Route: 058
     Dates: start: 20050225, end: 20050303
  3. PEG-INTRON [Suspect]
     Indication: HEPATITIS C
     Dosage: 60 MCG QW SUBCUTANEOUS
     Route: 058
     Dates: start: 20050304, end: 20050411
  4. PEG-INTRON [Suspect]
     Indication: HEPATITIS C
     Dosage: 60 MCG QW SUBCUTANEOUS
     Route: 058
     Dates: start: 20050423, end: 20050428
  5. REBETOL [Suspect]
     Indication: HEPATITIS C
     Dosage: 400 MG ORAL
     Route: 048
     Dates: start: 20050225, end: 20050428
  6. REBETOL [Suspect]
     Indication: HEPATITIS C
     Dosage: 400 MG ORAL
     Route: 048
     Dates: start: 20050225, end: 20050412
  7. REBETOL [Suspect]
     Indication: HEPATITIS C
     Dosage: 400 MG ORAL
     Route: 048
     Dates: start: 20050225, end: 20050412
  8. REBETOL [Suspect]
     Indication: HEPATITIS C
     Dosage: 400 MG ORAL
     Route: 048
     Dates: start: 20050423, end: 20050428
  9. PROMAC (POLAPREZINC) [Concomitant]
  10. VOLTAREN [Concomitant]
  11. LENDORMIN [Concomitant]
  12. GASTROINTESTINAL DRUG [Concomitant]
  13. URINORM [Concomitant]
  14. DEPAS [Concomitant]
  15. CYTOTEC [Concomitant]
  16. RABEPRAZOLE SODIUM [Concomitant]
  17. REBAMIPIDE TABLETS [Concomitant]

REACTIONS (7)
  - ANOREXIA [None]
  - BLOOD CALCIUM DECREASED [None]
  - DRUG INTERACTION [None]
  - HYPOAESTHESIA [None]
  - MUSCLE SPASMS [None]
  - MYALGIA [None]
  - TETANY [None]
